FAERS Safety Report 7429152 (Version 2)
Quarter: 2013Q4

REPORT INFORMATION
  Report Type: Spontaneous
  Country: US (occurrence: None)
  Receive Date: 20100615
  Receipt Date: 20131204
  Transmission Date: 20140711
  Serious: Yes (Death, Hospitalization)
  Sender: FDA-Public Use
  Company Number: 2010S1003566

PATIENT
  Age: 85 Year
  Sex: Male
  Weight: 94.5 kg

DRUGS (5)
  1. FLEET PHOSPHO-SODA ORAL SALINE LAXATIVE, GINGER-LEMON FLAVOR [Suspect]
     Indication: COLONOSCOPY
     Dosage: PO
     Route: 048
     Dates: start: 20071021, end: 20071021
  2. GOLYTELY [Suspect]
     Indication: COLONOSCOPY
     Route: 048
     Dates: start: 20071018, end: 20071018
  3. PROCARDIA (NIFEDIPINE) [Concomitant]
  4. OXYBUTYNIN (OXYBUTYNIN) [Concomitant]
  5. ATROPINE SULFATE 1% (ATROPINE SULFATE) [Concomitant]

REACTIONS (11)
  - Injury [None]
  - Dyspnoea [None]
  - Iron deficiency anaemia [None]
  - Renal failure [None]
  - Polyp [None]
  - Gastritis erosive [None]
  - Gastrointestinal haemorrhage [None]
  - Confusional state [None]
  - Thermal burn [None]
  - Wound complication [None]
  - Sepsis [None]
